FAERS Safety Report 7627818-6 (Version None)
Quarter: 2011Q3

REPORT INFORMATION
  Report Type: 
  Country: None (occurrence: None)
  Receive Date: 20110721
  Receipt Date: 20110712
  Transmission Date: 20111222
  Serious: Yes (Hospitalization)
  Sender: FDA-Public Use
  Company Number: US-BAXTER-2011BH020323

PATIENT
  Sex: Female

DRUGS (4)
  1. DOBUTAMINE HCL [Concomitant]
     Indication: CARDIAC DISORDER
     Route: 041
  2. DIANEAL [Suspect]
     Indication: PERITONEAL DIALYSIS
     Route: 033
  3. DIANEAL [Suspect]
     Indication: PERITONEAL DIALYSIS
     Route: 033
     Dates: start: 20110101
  4. DIANEAL [Suspect]

REACTIONS (3)
  - LIMB DISCOMFORT [None]
  - FLUID OVERLOAD [None]
  - CONDITION AGGRAVATED [None]
